FAERS Safety Report 10716094 (Version 1)
Quarter: 2015Q1

REPORT INFORMATION
  Report Type: Spontaneous
  Country: US (occurrence: None)
  Receive Date: 20150115
  Receipt Date: 20150115
  Transmission Date: 20150721
  Serious: Yes (Death, Hospitalization)
  Sender: FDA-Public Use
  Company Number: None

PATIENT
  Age: 37 Year
  Sex: Female
  Weight: 45.02 kg

DRUGS (29)
  1. LEVOFLOXACIN. [Concomitant]
     Active Substance: LEVOFLOXACIN
  2. NYSTATIN. [Concomitant]
     Active Substance: NYSTATIN
  3. PILOCARPINE [Concomitant]
     Active Substance: PILOCARPINE
  4. SALSALATE. [Concomitant]
     Active Substance: SALSALATE
  5. MIRTAZAPINE. [Concomitant]
     Active Substance: MIRTAZAPINE
  6. TRAMADOL [Concomitant]
     Active Substance: TRAMADOL
  7. VITAMIN B [Concomitant]
     Active Substance: VITAMIN B
  8. VITAMIN E [Concomitant]
     Active Substance: .ALPHA.-TOCOPHEROL
  9. ZITHROMAX [Concomitant]
     Active Substance: AZITHROMYCIN DIHYDRATE
  10. BENZONATATE. [Concomitant]
     Active Substance: BENZONATATE
  11. FENTANYL. [Concomitant]
     Active Substance: FENTANYL
  12. FLUCONAZOLE. [Concomitant]
     Active Substance: FLUCONAZOLE
  13. NIACIN. [Concomitant]
     Active Substance: NIACIN
  14. PALBOCICLIB [Suspect]
     Active Substance: PALBOCICLIB
     Indication: SQUAMOUS CELL CARCINOMA
     Dosage: 125 MG PO DAYS 1-21 OF
     Route: 048
     Dates: start: 20140911, end: 20141230
  15. BACLOFEN. [Concomitant]
     Active Substance: BACLOFEN
  16. SENNA [Concomitant]
     Active Substance: SENNA LEAF\SENNOSIDES\SENNOSIDES A AND B
  17. TRIAMCINOLONE ACETONIDE. [Concomitant]
     Active Substance: TRIAMCINOLONE ACETONIDE
  18. VITAMIN C [Concomitant]
     Active Substance: ASCORBIC ACID
  19. LIDOCAINE. [Concomitant]
     Active Substance: LIDOCAINE
  20. MUCINEX [Concomitant]
     Active Substance: GUAIFENESIN
  21. DULOXETINE HCI. DR 60 MG [Concomitant]
     Active Substance: DULOXETINE HYDROCHLORIDE
  22. MINOCYCLINE [Concomitant]
     Active Substance: MINOCYCLINE\MINOCYCLINE HYDROCHLORIDE
  23. GABAPENTIN. [Concomitant]
     Active Substance: GABAPENTIN
  24. HYDROCODONE BITARTRATE AND ACETAMINOPHEN [Concomitant]
     Active Substance: ACETAMINOPHEN\HYDROCODONE BITARTRATE
  25. MULTIVITAMIN [Concomitant]
     Active Substance: VITAMINS
  26. SYNTHROID [Concomitant]
     Active Substance: LEVOTHYROXINE SODIUM
  27. CETUXIMAB [Suspect]
     Active Substance: CETUXIMAB
     Indication: SQUAMOUS CELL CARCINOMA
     Dosage: 250 MG/M2 IV WEEKLY
     Route: 042
     Dates: start: 20140911, end: 20141223
  28. CLINDAMAX [Concomitant]
     Active Substance: CLINDAMYCIN PHOSPHATE
  29. MAGIC MOUTHWASH [Concomitant]
     Active Substance: DIPHENHYDRAMINE HYDROCHLORIDE\LIDOCAINE HYDROCHLORIDE\NYSTATIN

REACTIONS (4)
  - Pneumonia [None]
  - Tumour pain [None]
  - Lung infection [None]
  - Disease progression [None]

NARRATIVE: CASE EVENT DATE: 20150106
